FAERS Safety Report 24096207 (Version 4)
Quarter: 2024Q3

REPORT INFORMATION
  Report Type: Spontaneous
  Country: US (occurrence: US)
  Receive Date: 20240716
  Receipt Date: 20240822
  Transmission Date: 20241017
  Serious: No
  Sender: AMGEN
  Company Number: US-AMGEN-USASP2024139246

PATIENT
  Age: 63 Year
  Sex: Male

DRUGS (6)
  1. KRYSTEXXA [Suspect]
     Active Substance: PEGLOTICASE
     Indication: Gouty tophus
     Dosage: UNK UNK, Q2WK (FIRST INFUSION)
     Route: 042
     Dates: start: 20240626
  2. KRYSTEXXA [Suspect]
     Active Substance: PEGLOTICASE
     Dosage: UNK UNK, Q2WK
     Route: 042
     Dates: start: 20240710
  3. KRYSTEXXA [Suspect]
     Active Substance: PEGLOTICASE
     Dosage: UNK UNK, Q2WK (FOURTH INFUSION)
     Route: 042
     Dates: start: 20240809
  4. COLCHICINE [Concomitant]
     Active Substance: COLCHICINE
     Dosage: UNK UNK, QD
     Route: 065
  5. BENADRYL [Concomitant]
     Active Substance: DIPHENHYDRAMINE HYDROCHLORIDE
     Indication: Product used for unknown indication
     Dosage: UNK
     Route: 065
  6. TYLENOL [Concomitant]
     Active Substance: ACETAMINOPHEN
     Indication: Product used for unknown indication
     Dosage: UNK
     Route: 065

REACTIONS (7)
  - Back pain [Unknown]
  - Gait disturbance [Not Recovered/Not Resolved]
  - Joint swelling [Unknown]
  - Gait inability [Unknown]
  - Gout [Recovering/Resolving]
  - Pain in extremity [Unknown]
  - Peripheral swelling [Unknown]

NARRATIVE: CASE EVENT DATE: 20240101
